FAERS Safety Report 4576567-X (Version None)
Quarter: 2005Q1

REPORT INFORMATION
  Report Type: 
  Country: None (occurrence: None)
  Receive Date: 20050119
  Receipt Date: 20040524
  Transmission Date: 20050727
  Serious: Yes (Hospitalization)
  Sender: FDA-Public Use
  Company Number: A03200401660

PATIENT
  Age: 71 Year
  Sex: Female
  Weight: 55 kg

DRUGS (9)
  1. PLAVIX [Suspect]
     Indication: ANTICOAGULANT THERAPY
     Dosage: 75 MG QD - ORAL
     Route: 048
     Dates: start: 20031014, end: 20031102
  2. PLAVIX [Suspect]
     Indication: STENT PLACEMENT
     Dosage: 75 MG QD - ORAL
     Route: 048
     Dates: start: 20031014, end: 20031102
  3. ANGIOMAX [Suspect]
     Indication: ANTICOAGULANT THERAPY
     Dosage: 41. 5MG BOLUS, 47.5 MG INFUSION, INTRAVENOUS NOS
     Route: 042
     Dates: start: 20031014, end: 20031014
  4. ANGIOMAX [Suspect]
     Indication: STENT PLACEMENT
     Dosage: 41. 5MG BOLUS, 47.5 MG INFUSION, INTRAVENOUS NOS
     Route: 042
     Dates: start: 20031014, end: 20031014
  5. ASPIRIN [Suspect]
     Dosage: 1 DF QD - ORAL
     Route: 048
     Dates: end: 20031102
  6. WARFARIN - UNKNOWN- UNIT DOSE: UNKNOWN [Suspect]
     Dosage: 2.5 MG QD - ORAL
     Route: 048
     Dates: end: 20031102
  7. ATENOLOL [Concomitant]
  8. AMLODIPINE BESYLATE [Concomitant]
  9. SIROLIMUS [Concomitant]

REACTIONS (2)
  - CHEST PAIN [None]
  - GASTROINTESTINAL HAEMORRHAGE [None]
